FAERS Safety Report 13558324 (Version 1)
Quarter: 2017Q2

REPORT INFORMATION
  Report Type: Spontaneous
  Country: US (occurrence: US)
  Receive Date: 20170518
  Receipt Date: 20170518
  Transmission Date: 20170830
  Serious: No
  Sender: FDA-Public Use
  Company Number: US-TEVA-761788ACC

PATIENT
  Sex: Female
  Weight: 72.19 kg

DRUGS (1)
  1. COPAXONE [Suspect]
     Active Substance: GLATIRAMER ACETATE
     Indication: MULTIPLE SCLEROSIS
     Dosage: 20 MILLIGRAM DAILY; FORM STRENGTH: UNKNOWN
     Route: 058

REACTIONS (4)
  - Chills [Recovering/Resolving]
  - Chest discomfort [Recovering/Resolving]
  - Speech disorder [Recovering/Resolving]
  - Headache [Recovering/Resolving]
